FAERS Safety Report 21572262 (Version 1)
Quarter: 2022Q4

REPORT INFORMATION
  Report Type: Spontaneous
  Country: FI (occurrence: FI)
  Receive Date: 20221109
  Receipt Date: 20221109
  Transmission Date: 20230112
  Serious: Yes (Other)
  Sender: FDA-Public Use
  Company Number: FI-PFIZER INC-202201259589

PATIENT
  Age: 29 Year
  Sex: Female

DRUGS (2)
  1. ABILIFY MAINTENA [Suspect]
     Active Substance: ARIPIPRAZOLE
     Indication: Product used for unknown indication
     Dosage: UNK
     Route: 065
  2. LORAZEPAM [Suspect]
     Active Substance: LORAZEPAM
     Indication: Product used for unknown indication
     Dosage: 1 MG
     Route: 065

REACTIONS (7)
  - Drug dependence [Unknown]
  - Visual impairment [Unknown]
  - Withdrawal syndrome [Unknown]
  - Muscle twitching [Unknown]
  - Tremor [Unknown]
  - Diarrhoea [Unknown]
  - Vision blurred [Unknown]
